FAERS Safety Report 5366271-2 (Version None)
Quarter: 2007Q2

REPORT INFORMATION
  Report Type: 
  Country: None (occurrence: None)
  Receive Date: 20070619
  Receipt Date: 20070619
  Transmission Date: 20071010
  Serious: Yes (Hospitalization)
  Sender: FDA-Public Use
  Company Number: None

PATIENT
  Age: 59 Year
  Sex: Male
  Weight: 87 kg

DRUGS (1)
  1. LITHIUM CARBONATE [Suspect]
     Indication: BIPOLAR DISORDER
     Dosage: 600MG/900MG QAM/QHS PO
     Route: 048
     Dates: start: 20061228, end: 20070112

REACTIONS (4)
  - ANTIPSYCHOTIC DRUG LEVEL INCREASED [None]
  - HEADACHE [None]
  - NAUSEA [None]
  - TREMOR [None]
